FAERS Safety Report 7113224-X (Version None)
Quarter: 2010Q4

REPORT INFORMATION
  Report Type: 
  Country: None (occurrence: None)
  Receive Date: 20101119
  Receipt Date: 20100108
  Transmission Date: 20110411
  Serious: No
  Sender: FDA-Public Use
  Company Number: A0838515A

PATIENT
  Age: 36 Year
  Sex: Female

DRUGS (5)
  1. BUPROPION HYDROCHLORIDE [Suspect]
     Indication: DEPRESSION
     Route: 048
  2. PAROXETINE HCL [Suspect]
     Indication: DEPRESSION
     Dosage: 15MG PER DAY
     Route: 048
  3. PAXIL [Suspect]
     Indication: DEPRESSION
     Dosage: 15MG PER DAY
     Route: 048
     Dates: start: 20031016
  4. WELLBUTRIN SR [Suspect]
     Indication: DEPRESSION
     Route: 048
  5. ALLERGY MEDICINE [Concomitant]

REACTIONS (4)
  - DRUG INEFFECTIVE [None]
  - FATIGUE [None]
  - IRRITABILITY [None]
  - PERFORMANCE STATUS DECREASED [None]
